FAERS Safety Report 4285411-X (Version None)
Quarter: 2004Q1

REPORT INFORMATION
  Report Type: 
  Country: None (occurrence: None)
  Receive Date: 20040202
  Receipt Date: 20040119
  Transmission Date: 20041129
  Serious: Yes (Life-Threatening, Hospitalization)
  Sender: FDA-Public Use
  Company Number: CIP03003430

PATIENT
  Age: 81 Year
  Sex: Female

DRUGS (6)
  1. BENET (RISEDRONATE SODIUM) TABLET, 2.5 MG [Suspect]
     Indication: OSTEOPOROSIS
     Dosage: 2.5 MG DAILY ONE DOSE ONLY, ORAL
     Route: 048
     Dates: start: 20031121, end: 20031121
  2. URSO [Concomitant]
  3. ROCALTROL [Concomitant]
  4. BEZATOL - SLOW RELEASE (BEZAFIBRATE) [Concomitant]
  5. NORVASC [Concomitant]
  6. LENDORM [Concomitant]

REACTIONS (24)
  - ALBUMIN GLOBULIN RATIO ABNORMAL [None]
  - AMMONIA INCREASED [None]
  - ANAEMIA [None]
  - BLOOD ALBUMIN DECREASED [None]
  - BLOOD ALKALINE PHOSPHATASE INCREASED [None]
  - BLOOD BILIRUBIN INCREASED [None]
  - BLOOD CHOLINESTERASE DECREASED [None]
  - BLOOD GLUCOSE INCREASED [None]
  - BLOOD PH INCREASED [None]
  - BLOOD POTASSIUM DECREASED [None]
  - BLOOD UREA INCREASED [None]
  - C-REACTIVE PROTEIN INCREASED [None]
  - CLAVICLE FRACTURE [None]
  - FALL [None]
  - GAMMA-GLUTAMYLTRANSFERASE INCREASED [None]
  - GASTRIC ULCER HAEMORRHAGE [None]
  - HAEMATEMESIS [None]
  - IMMUNOGLOBULINS INCREASED [None]
  - PCO2 DECREASED [None]
  - PO2 INCREASED [None]
  - PROTEIN TOTAL DECREASED [None]
  - PROTHROMBIN TIME PROLONGED [None]
  - SHOCK HAEMORRHAGIC [None]
  - THROMBOSIS [None]
